FAERS Safety Report 9877153 (Version 1)
Quarter: 2014Q1

REPORT INFORMATION
  Report Type: Spontaneous
  Country: GB (occurrence: GB)
  Receive Date: 20140206
  Receipt Date: 20140206
  Transmission Date: 20141002
  Serious: Yes (Disabling)
  Sender: FDA-Public Use
  Company Number: GB-JNJFOC-20140201983

PATIENT
  Age: 79 Year
  Sex: Male
  Weight: 85.4 kg

DRUGS (14)
  1. XARELTO [Suspect]
     Indication: PRODUCT USED FOR UNKNOWN INDICATION
     Route: 048
  2. LANSOPRAZOLE [Concomitant]
     Route: 065
     Dates: start: 20140107
  3. WARFARIN SODIUM [Concomitant]
     Route: 065
     Dates: start: 20131129, end: 20131227
  4. NITROLINGUAL [Concomitant]
     Route: 065
     Dates: start: 20140107
  5. TAMSULOSIN HYDROCHLORIDE [Concomitant]
     Route: 065
     Dates: start: 20140107
  6. TAMSULOSIN HYDROCHLORIDE [Concomitant]
     Route: 065
     Dates: start: 20131111, end: 20131211
  7. TINZAPARIN [Concomitant]
     Route: 065
     Dates: start: 20131204, end: 20131211
  8. ISOSORBIDE MONONITRATE [Concomitant]
     Route: 065
     Dates: start: 20130923
  9. IRBESARTAN [Concomitant]
     Route: 061
     Dates: start: 20131105, end: 20131231
  10. BISOPROLOL [Concomitant]
     Route: 065
     Dates: start: 20130923, end: 20131231
  11. LEVOTHYROXINE [Concomitant]
     Route: 065
     Dates: start: 20140107
  12. RIVAROXABAN [Concomitant]
     Route: 065
     Dates: start: 20131217
  13. PARACETAMOL [Concomitant]
     Route: 065
     Dates: start: 20140107
  14. PARACETAMOL [Concomitant]
     Route: 065
     Dates: start: 20131105, end: 20131203

REACTIONS (2)
  - Dizziness [Recovered/Resolved]
  - Vision blurred [Unknown]
